FAERS Safety Report 10335767 (Version 1)
Quarter: 2014Q3

REPORT INFORMATION
  Report Type: Spontaneous
  Country: US (occurrence: US)
  Receive Date: 20140723
  Receipt Date: 20140723
  Transmission Date: 20150326
  Serious: No
  Sender: FDA-Public Use
  Company Number: US-UNITED THERAPEUTICS-UTC-047817

PATIENT
  Age: 47 Year
  Sex: Female
  Weight: 100.7 kg

DRUGS (2)
  1. REVATIO [Concomitant]
     Active Substance: SILDENAFIL CITRATE
  2. REMODULIN [Suspect]
     Active Substance: TREPROSTINIL
     Dosage: 0.014 UG/KG/MIN
     Route: 058
     Dates: start: 20140405

REACTIONS (4)
  - Infusion site pain [Unknown]
  - Drug dose omission [Unknown]
  - Infusion site erythema [Unknown]
  - Device dislocation [Unknown]

NARRATIVE: CASE EVENT DATE: 201404
